FAERS Safety Report 16598234 (Version 3)
Quarter: 2019Q3

REPORT INFORMATION
  Report Type: Spontaneous
  Country: DE (occurrence: DE)
  Receive Date: 20190719
  Receipt Date: 20190802
  Transmission Date: 20191004
  Serious: Yes (Hospitalization)
  Sender: FDA-Public Use
  Company Number: DE-PFIZER INC-2019302421

PATIENT
  Age: 57 Year
  Sex: Male

DRUGS (5)
  1. BECLOMETASON-RATIOPHARM [Suspect]
     Active Substance: BECLOMETHASONE DIPROPIONATE
     Dosage: 0.25 MG, UNK (0.25 MG, PAUSED)
     Route: 065
  2. PANTOPRAZOLE [Suspect]
     Active Substance: PANTOPRAZOLE
     Dosage: 40 MG, 1X/DAY (40 MG, 1-0-0-0)
     Route: 065
  3. SILDENAFIL CITRATE. [Suspect]
     Active Substance: SILDENAFIL CITRATE
     Dosage: 100 MG, AS NEEDED
     Route: 065
  4. FOLSAEURE [Suspect]
     Active Substance: FOLIC ACID
     Dosage: 5 MG, 1X/DAY (5 MG, 1-0-0-0)
     Route: 065
  5. ZINC. [Concomitant]
     Active Substance: ZINC
     Dosage: 15 MG, 1X/DAY (15 MG, 0-1-0-0)

REACTIONS (6)
  - Nausea [Unknown]
  - Abdominal pain [Unknown]
  - Flatulence [Unknown]
  - Glomerular filtration rate decreased [Unknown]
  - Gamma-glutamyltransferase increased [Unknown]
  - Abdominal pain lower [Unknown]

NARRATIVE: CASE EVENT DATE: 20171025
